FAERS Safety Report 7950095-3 (Version None)
Quarter: 2011Q4

REPORT INFORMATION
  Report Type: 
  Country: None (occurrence: None)
  Receive Date: 20111130
  Receipt Date: 20111126
  Transmission Date: 20120403
  Serious: Yes (Life-Threatening)
  Sender: FDA-Public Use
  Company Number: US-US-EMD SERONO, INC.-7059432

PATIENT
  Sex: Male

DRUGS (2)
  1. BLOOD PRESSURE MEDICATIONS [Suspect]
     Indication: BLOOD PRESSURE
  2. REBIF [Suspect]
     Indication: PRODUCT USED FOR UNKNOWN INDICATION
     Route: 058
     Dates: start: 20031114

REACTIONS (1)
  - RENAL IMPAIRMENT [None]
